FAERS Safety Report 9837311 (Version 2)
Quarter: 2014Q1

REPORT INFORMATION
  Report Type: Spontaneous
  Country: US (occurrence: US)
  Receive Date: 20140123
  Receipt Date: 20140310
  Transmission Date: 20141002
  Serious: Yes (Other)
  Sender: FDA-Public Use
  Company Number: US-PFIZER INC-2014017602

PATIENT
  Age: 49 Year
  Sex: Female
  Weight: 104 kg

DRUGS (10)
  1. DOXYCYCLINE HYCLATE [Suspect]
     Dosage: 100 MG, 2X/DAY
     Route: 048
  2. CALCIUM [Concomitant]
     Dosage: 600
     Route: 048
  3. PREDNISONE [Concomitant]
     Route: 048
  4. LANREOTIDE [Concomitant]
     Dosage: UNK
     Route: 058
  5. FEOSOL [Concomitant]
     Dosage: UNK
     Route: 048
  6. FOLIC ACID [Concomitant]
     Route: 048
  7. SULAR [Concomitant]
     Dosage: UNK
  8. TOPROL XL [Concomitant]
     Dosage: UNK
  9. LEVOXYL [Concomitant]
     Dosage: UNK
  10. BENICAR [Concomitant]
     Dosage: UNK

REACTIONS (5)
  - Uterine haemorrhage [Unknown]
  - Endometrial disorder [Unknown]
  - Headache [Unknown]
  - Drug hypersensitivity [Unknown]
  - Throat tightness [Unknown]
